FAERS Safety Report 16571605 (Version 1)
Quarter: 2019Q3

REPORT INFORMATION
  Report Type: Spontaneous
  Country: US (occurrence: US)
  Receive Date: 20190713
  Receipt Date: 20190713
  Transmission Date: 20191004
  Serious: Yes (Hospitalization, Congenital Anomaly)
  Sender: FDA-Public Use
  Company Number: None

PATIENT
  Age: 31 Year
  Sex: Female
  Weight: 75.15 kg

DRUGS (2)
  1. VCF CONTRACEPTIVE PRE-FILLED APPLICATORS [Suspect]
     Active Substance: NONOXYNOL-9
     Indication: CONTRACEPTION
     Dates: start: 20190703, end: 20190707
  2. MULTI-VTAMINS [Concomitant]

REACTIONS (2)
  - Vulvovaginal swelling [None]
  - Vulvovaginal discomfort [None]

NARRATIVE: CASE EVENT DATE: 20190708
